FAERS Safety Report 9617246 (Version 3)
Quarter: 2013Q4

REPORT INFORMATION
  Report Type: Spontaneous
  Country: JP (occurrence: JP)
  Receive Date: 20131011
  Receipt Date: 20131017
  Transmission Date: 20140711
  Serious: Yes (Other)
  Sender: FDA-Public Use
  Company Number: ALCN2010JP001558

PATIENT
  Age: 70 Year
  Sex: Female

DRUGS (4)
  1. VEGAMOX [Suspect]
     Indication: CONJUNCTIVITIS
     Dosage: 1 GTT, QID
     Route: 047
     Dates: start: 20100410, end: 20100410
  2. NORVASC [Concomitant]
     Indication: HYPERTENSION
     Dosage: 5 MG, BID
     Route: 047
  3. CARDENALIN [Concomitant]
     Indication: HYPERTENSION
     Dosage: 1 MG, QD
     Route: 048
  4. DEPAS [Concomitant]
     Indication: HYPERTENSION
     Dosage: 0.5 MG, QD
     Route: 048

REACTIONS (1)
  - Anaphylactoid reaction [Recovered/Resolved]
